FAERS Safety Report 8644019 (Version 4)
Quarter: 2012Q4

REPORT INFORMATION
  Report Type: 
  Country: US (occurrence: US)
  Receive Date: 20120629
  Receipt Date: 20121114
  Transmission Date: 20130627
  Serious: Yes (Death, Hospitalization)
  Sender: FDA-Public Use
  Company Number: US-GLAXOSMITHKLINE-A0982618A

PATIENT
  Age: 59 Year
  Sex: Female

DRUGS (1)
  1. FLOLAN [Suspect]
     Dosage: 122NGKM Continuous
     Route: 065
     Dates: start: 20020403

REACTIONS (6)
  - Hypoxia [Unknown]
  - Oxygen supplementation [Unknown]
  - Asthenia [Unknown]
  - Fall [Unknown]
  - Muscular weakness [Unknown]
  - Death [Fatal]
